FAERS Safety Report 6198931-8 (Version None)
Quarter: 2009Q2

REPORT INFORMATION
  Report Type: 
  Country: None (occurrence: None)
  Receive Date: 20090522
  Receipt Date: 20090515
  Transmission Date: 20091009
  Serious: Yes (Other)
  Sender: FDA-Public Use
  Company Number: MX-ELI_LILLY_AND_COMPANY-MX200904000990

PATIENT
  Age: 31 Year
  Sex: Male
  Weight: 78 kg

DRUGS (6)
  1. HUMALOG [Suspect]
     Indication: TYPE 1 DIABETES MELLITUS
     Dosage: UNK, AS NEEDED
     Route: 058
     Dates: start: 20060301, end: 20090501
  2. HUMALOG [Suspect]
     Dosage: UNK, 2/D
     Route: 058
     Dates: start: 20090501
  3. LANTUS [Concomitant]
     Indication: TYPE 1 DIABETES MELLITUS
     Dosage: 16 IU, EACH EVENING
     Route: 065
     Dates: end: 20090501
  4. LANTUS [Concomitant]
     Dosage: 2 IU, EACH MORNING
     Route: 065
     Dates: start: 20090501
  5. CAPTOPRIL [Concomitant]
     Indication: BLOOD CHOLESTEROL
     Dosage: 25 MG, DAILY (1/D)
     Route: 065
  6. ASPIRINE PROTECT [Concomitant]
     Dosage: UNK, DAILY (1/D)
     Route: 065

REACTIONS (3)
  - CONVULSION [None]
  - HYPOGLYCAEMIA [None]
  - LOSS OF CONSCIOUSNESS [None]
